FAERS Safety Report 8179219-2 (Version None)
Quarter: 2012Q1

REPORT INFORMATION
  Report Type: 
  Country: None (occurrence: None)
  Receive Date: 20120227
  Receipt Date: 20120215
  Transmission Date: 20120608
  Serious: Yes (Hospitalization)
  Sender: FDA-Public Use
  Company Number: DSM-2012-00211

PATIENT
  Age: 70 Year
  Sex: Female

DRUGS (17)
  1. OLMESARTAN MEDOXOMIL [Suspect]
     Indication: HYPERTENSION
     Dosage: 40 MG (40 MG, 1 IN 1 D), ORAL
     Route: 048
     Dates: end: 20111025
  2. ZALDIAR (PARACETAMOL, TRAMADOL HYDROCHLORIDE) (TABLET) (PARACETAMOL, T [Concomitant]
  3. LIPANTHYL (FENOFIBRATE) (145 MILLIGRAM, TABLET) (FENOFIBRATE) [Concomitant]
  4. LEXOMIL (BROMAZEPAM) (BROMAZEPAM) [Concomitant]
  5. ALLOPURINOL [Concomitant]
  6. TEMERIT (NEBIVOLOL) (NEBIVOLOL) [Concomitant]
  7. KETOPROFEN [Suspect]
     Indication: BACK PAIN
     Dosage: 200 MG (100 MG, 2 IN 1 D), ORAL
     Route: 048
     Dates: start: 20111019, end: 20111025
  8. KARDEGIC (ACETYLSALICYLATE LYSINE) (ACETYLSALICYLATE LYSINE) [Concomitant]
  9. BIPRETERAX (INDAPAMIDE, PERINDOPRIL ERBUMINE) (INDAPAMIDE, PERINDOPRIL [Suspect]
     Indication: HYPERTENSION
     Dosage: 1 DOSAGE FORMS (1 DOSAGE FORMS, 1 IN 1 D), ORAL
     Route: 048
     Dates: end: 20111025
  10. OROCAL DE (COLECALCIFEROL, CALCIUM CARBONATE) (COLECALCIFEROL, CALCIUM [Concomitant]
  11. ATARAX (HYDROXYZINE) (25 MILLIGRAM, COATED TABLET) (HYDROXYZINE) [Concomitant]
  12. LEVOTHYROXINE SODIUM [Concomitant]
  13. PIASCLEDINE (PIAS) (300 MILLIGRAM, CAPSULE) (PIAS) [Concomitant]
  14. INIPOMP (PANTOPRAZOLE) (PANTOPRAZOLE) [Concomitant]
  15. ALDALIX (SPIRONOLACTONE, FUROSEMIDE) (CAPSULE) (SPIRONOLACTONE, FUROSE [Suspect]
     Indication: HYPERTENSION
     Dosage: 50/20 MG (1 IN 1 D), ORAL
     Route: 048
     Dates: end: 20111025
  16. FLEXEA (GLUCOSAMINE) (625 MILLIGRAM, TABLET) (GLUCOSAMINE) [Concomitant]
  17. PROZAC (FLUOXETINE) (FLUOXETINE) [Concomitant]

REACTIONS (3)
  - RENAL FAILURE ACUTE [None]
  - HYPERKALAEMIA [None]
  - DRUG INTERACTION [None]
